FAERS Safety Report 6100119-3 (Version None)
Quarter: 2009Q1

REPORT INFORMATION
  Report Type: 
  Country: None (occurrence: None)
  Receive Date: 20090227
  Receipt Date: 20090227
  Transmission Date: 20090719
  Serious: No
  Sender: FDA-Public Use
  Company Number: None

PATIENT
  Age: 48 Year
  Sex: Male
  Weight: 107.0489 kg

DRUGS (1)
  1. TAXOTERE [Suspect]
     Indication: NEOPLASM MALIGNANT
     Dosage: 169MG ONCE IV
     Route: 042
     Dates: start: 20090112

REACTIONS (1)
  - DYSPNOEA [None]
